APPROVED DRUG PRODUCT: BRETYLIUM TOSYLATE IN DEXTROSE 5% IN PLASTIC CONTAINER
Active Ingredient: BRETYLIUM TOSYLATE
Strength: 400MG/100ML
Dosage Form/Route: INJECTABLE;INJECTION
Application: N019837 | Product #001
Applicant: BAXTER HEALTHCARE CORP
Approved: Apr 12, 1989 | RLD: No | RS: No | Type: DISCN